FAERS Safety Report 7818234-2 (Version None)
Quarter: 2011Q4

REPORT INFORMATION
  Report Type: 
  Country: None (occurrence: None)
  Receive Date: 20111013
  Receipt Date: 20111005
  Transmission Date: 20120403
  Serious: Yes (Life-Threatening, Other)
  Sender: FDA-Public Use
  Company Number: TCI2011A05265

PATIENT
  Age: 70 Year
  Sex: Male

DRUGS (13)
  1. LANSOPRAZOLE [Suspect]
     Dosage: 30 MG (30 MG,1 D) PER ORAL
     Route: 048
  2. MEROPENEM [Concomitant]
  3. ACETAMINOPHEN [Concomitant]
  4. CYTARABINE [Concomitant]
  5. ACLARUBICIN HYDROCHLORIDE [Concomitant]
  6. VORICONAZOLE [Suspect]
     Indication: BRONCHOPULMONARY ASPERGILLOSIS
     Dosage: 400 MG (200 MG,2 IN 1 D) PER ORAL ; 400 MG (200 MG,2 IN 1 D) PER ORAL
     Route: 048
  7. VORICONAZOLE [Suspect]
     Indication: BRONCHOPULMONARY ASPERGILLOSIS
     Dosage: 400 MG (200 MG,2 IN 1 D) PER ORAL ; 400 MG (200 MG,2 IN 1 D) PER ORAL
     Route: 048
  8. VANCOMYCIN HYCHLORIDE [Concomitant]
  9. SODIUM ALGINATE [Concomitant]
  10. MAGNESIUM OXIDE [Concomitant]
  11. CEFEPIME HYDROCHLORIDE [Concomitant]
  12. SUCRALFATE [Concomitant]
  13. RAMOSETRON HYDROCHLORIDE [Concomitant]

REACTIONS (6)
  - ELECTROCARDIOGRAM QT PROLONGED [None]
  - DRUG INTERACTION [None]
  - LOSS OF CONSCIOUSNESS [None]
  - HYPOMAGNESAEMIA [None]
  - VENTRICULAR TACHYCARDIA [None]
  - TORSADE DE POINTES [None]
